FAERS Safety Report 8233602-5 (Version None)
Quarter: 2012Q1

REPORT INFORMATION
  Report Type: 
  Country: None (occurrence: None)
  Receive Date: 20120326
  Receipt Date: 20120319
  Transmission Date: 20120608
  Serious: Yes (Hospitalization, Other)
  Sender: FDA-Public Use
  Company Number: PHHY2010US32390

PATIENT
  Sex: Female

DRUGS (10)
  1. SYNTHROID [Concomitant]
     Dosage: 100 UG, QD
  2. EXTAVIA [Suspect]
     Dosage: 0.125 MG, QOD
     Route: 058
  3. CALCIUM WITH VITAMIN D [Concomitant]
     Dosage: 60 MG, QD
  4. ASPIRIN [Concomitant]
     Dosage: 81 MG, QD
  5. NITROFURANTOIN [Concomitant]
     Dosage: 100 MG, QD
  6. MULTI-VITAMIN [Concomitant]
     Dosage: 1 DF, QD
  7. EXTAVIA [Suspect]
     Dosage: 0.25 MG, QOD
     Route: 058
     Dates: start: 20110926
  8. EXTAVIA [Suspect]
     Indication: MULTIPLE SCLEROSIS
     Dosage: 0.0625 MG, QOD
     Route: 058
     Dates: start: 20100505
  9. PRAVASTATIN [Concomitant]
     Dosage: 40 MG, QD
  10. ZESTRIL [Concomitant]
     Dosage: 4 MG, QD

REACTIONS (6)
  - MULTIPLE SCLEROSIS [None]
  - URINARY TRACT INFECTION [None]
  - CHILLS [None]
  - CELLULITIS [None]
  - MUSCLE SPASMS [None]
  - MUSCULAR WEAKNESS [None]
